FAERS Safety Report 6180564-0 (Version None)
Quarter: 2009Q2

REPORT INFORMATION
  Report Type: 
  Country: None (occurrence: None)
  Receive Date: 20090504
  Receipt Date: 20090504
  Transmission Date: 20091009
  Serious: Yes (Other)
  Sender: FDA-Public Use
  Company Number: None

PATIENT
  Age: 65 Year
  Sex: Female
  Weight: 55.7924 kg

DRUGS (5)
  1. FENTANYL TRANSDERMAL SYSTEM [Suspect]
     Indication: MULTIPLE SCLEROSIS
     Dosage: 2 WEEKLY TRANSDERM
     Route: 062
     Dates: start: 19990107, end: 20090210
  2. LASIX [Concomitant]
  3. BACLOFEN [Concomitant]
  4. DITROPAN [Concomitant]
  5. NEURONTIN [Concomitant]

REACTIONS (3)
  - DRUG WITHDRAWAL SYNDROME [None]
  - LETHARGY [None]
  - RESPIRATORY ARREST [None]
